FAERS Safety Report 18458676 (Version 1)
Quarter: 2020Q4

REPORT INFORMATION
  Report Type: Spontaneous
  Country: US (occurrence: US)
  Receive Date: 20201103
  Receipt Date: 20201103
  Transmission Date: 20210114
  Serious: Yes (Other)
  Sender: FDA-Public Use
  Company Number: US-ELI_LILLY_AND_COMPANY-US202010011575

PATIENT
  Sex: Female

DRUGS (1)
  1. ABEMACICLIB 150MG [Suspect]
     Active Substance: ABEMACICLIB
     Indication: NEOPLASM MALIGNANT
     Dosage: 150 MG, UNKNOWN
     Route: 065
     Dates: start: 20201006

REACTIONS (2)
  - Malignant neoplasm progression [Unknown]
  - Drug ineffective [Unknown]
